FAERS Safety Report 6862438-2 (Version None)
Quarter: 2010Q3

REPORT INFORMATION
  Report Type: 
  Country: None (occurrence: None)
  Receive Date: 20100719
  Receipt Date: 20100713
  Transmission Date: 20110219
  Serious: Yes (Hospitalization)
  Sender: FDA-Public Use
  Company Number: 2010SP038725

PATIENT
  Sex: Female

DRUGS (1)
  1. PEGINTERFERON ALFA-2B W/RIBAVIRIN (PEGYLATED INTERFERON ALFA-2B 2/RIBA [Suspect]
     Indication: HEPATITIS C
     Dates: end: 20100407

REACTIONS (1)
  - MUSCLE NECROSIS [None]
